FAERS Safety Report 17960276 (Version 2)
Quarter: 2020Q3

REPORT INFORMATION
  Report Type: Report from Study
  Country: US (occurrence: US)
  Receive Date: 20200630
  Receipt Date: 20200706
  Transmission Date: 20201103
  Serious: Yes (Other)
  Sender: FDA-Public Use
  Company Number: US-HORIZON-KRY-0864-2020

PATIENT
  Age: 66 Year
  Sex: Male
  Weight: 118 kg

DRUGS (5)
  1. KRYSTEXXA [Suspect]
     Active Substance: PEGLOTICASE
     Indication: GOUTY TOPHUS
     Dosage: EVERY 2 WEEKS
     Route: 042
     Dates: start: 20200414, end: 20200623
  2. TYLENOL [Concomitant]
     Active Substance: ACETAMINOPHEN
     Indication: PREMEDICATION
     Dosage: 500MG PO
     Route: 048
  3. SOLU?MEDROL [Concomitant]
     Active Substance: METHYLPREDNISOLONE SODIUM SUCCINATE
     Indication: PREMEDICATION
     Dosage: 125MG IV
     Route: 042
  4. ULORIC [Concomitant]
     Active Substance: FEBUXOSTAT
  5. BENADRYL [Concomitant]
     Active Substance: DIPHENHYDRAMINE HYDROCHLORIDE
     Indication: PREMEDICATION
     Dosage: 25MG IV
     Route: 042

REACTIONS (2)
  - Infusion related reaction [Recovered/Resolved]
  - Therapeutic response decreased [Unknown]

NARRATIVE: CASE EVENT DATE: 20200609
